FAERS Safety Report 24927873 (Version 1)
Quarter: 2025Q1

REPORT INFORMATION
  Report Type: Spontaneous
  Country: IR (occurrence: IR)
  Receive Date: 20250205
  Receipt Date: 20250205
  Transmission Date: 20250409
  Serious: Yes (Congenital Anomaly)
  Sender: MYLAN
  Company Number: IR-MYLANLABS-2025M1008832

PATIENT
  Sex: Male

DRUGS (1)
  1. SERTRALINE [Suspect]
     Active Substance: SERTRALINE HYDROCHLORIDE
     Indication: Depression
     Dosage: 100 MILLIGRAM, QD
     Route: 064

REACTIONS (3)
  - Ductus arteriosus stenosis foetal [Recovered/Resolved]
  - Congenital pulmonary hypertension [Recovered/Resolved]
  - Foetal exposure during pregnancy [Recovered/Resolved]
